FAERS Safety Report 6046709-8 (Version None)
Quarter: 2009Q1

REPORT INFORMATION
  Report Type: 
  Country: None (occurrence: None)
  Receive Date: 20090122
  Receipt Date: 20090110
  Transmission Date: 20090719
  Serious: Yes (Hospitalization, Other)
  Sender: FDA-Public Use
  Company Number: US-PFIZER INC-2008080750

PATIENT
  Sex: Female

DRUGS (4)
  1. NEURONTIN [Suspect]
     Dosage: 500 MG, 3X/DAY
  2. METOCLOPRAMIDE HCL [Suspect]
     Dosage: 5 MG, 3X/DAY
     Route: 048
  3. GENERAL NUTRIENTS [Suspect]
     Dosage: UNK
  4. CARAFATE [Suspect]
     Dosage: 1 G, 4X/DAY

REACTIONS (2)
  - BLOOD GLUCOSE INCREASED [None]
  - IMPAIRED GASTRIC EMPTYING [None]
